FAERS Safety Report 25406450 (Version 1)
Quarter: 2025Q2

REPORT INFORMATION
  Report Type: Spontaneous
  Country: US (occurrence: US)
  Receive Date: 20250606
  Receipt Date: 20250606
  Transmission Date: 20250717
  Serious: Yes (Other)
  Sender: FERRING
  Company Number: US-FERRINGPH-2025FE01700

PATIENT

DRUGS (9)
  1. FIRMAGON [Suspect]
     Active Substance: DEGARELIX ACETATE
     Indication: Prostate cancer
     Dosage: 80 MG, MONTHLY
     Route: 058
     Dates: start: 20240410
  2. APIXABAN [Concomitant]
     Active Substance: APIXABAN
     Indication: Product used for unknown indication
     Dosage: 2.5 MG, 2 TIMES DAILY
     Route: 065
     Dates: start: 20241231
  3. CARVEDILOL [Concomitant]
     Active Substance: CARVEDILOL
     Indication: Product used for unknown indication
     Dosage: 6.25 MG, 2 TIMES DAILY
     Route: 065
     Dates: start: 20231122
  4. DOFETILIDE [Concomitant]
     Active Substance: DOFETILIDE
     Indication: Product used for unknown indication
     Dosage: 250 MG, 2 TIMES DAILY
     Route: 065
     Dates: start: 20211002
  5. LANTUS [Concomitant]
     Active Substance: INSULIN GLARGINE
     Indication: Product used for unknown indication
     Dosage: 22 UNITS, 1 TIME DAILY AT BEDTIME (HS)
     Route: 065
     Dates: start: 20201002
  6. EMPAGLIFLOZIN [Concomitant]
     Active Substance: EMPAGLIFLOZIN
     Indication: Product used for unknown indication
     Dosage: 10 MG, 1 TIME DAILY
     Route: 065
  7. LOSARTAN [Concomitant]
     Active Substance: LOSARTAN
     Indication: Product used for unknown indication
     Dosage: 50 MG, 2 TIMES DAILY
     Route: 065
     Dates: start: 20240715
  8. OMEPRAZOLE [Concomitant]
     Active Substance: OMEPRAZOLE
     Indication: Product used for unknown indication
     Dosage: 20 MG, 1 TIME DAILY
     Route: 065
     Dates: start: 20180823
  9. TRADJENTA [Concomitant]
     Active Substance: LINAGLIPTIN
     Indication: Product used for unknown indication
     Dosage: 5 MG, 1 TIME DAILY
     Route: 065
     Dates: start: 20240502

REACTIONS (1)
  - Haematoma infection [Recovered/Resolved]

NARRATIVE: CASE EVENT DATE: 20250305
